FAERS Safety Report 4967914-5 (Version None)
Quarter: 2006Q2

REPORT INFORMATION
  Report Type: 
  Country: None (occurrence: None)
  Receive Date: 20060410
  Receipt Date: 20051017
  Transmission Date: 20061013
  Serious: Yes (Hospitalization, Disabling)
  Sender: FDA-Public Use
  Company Number: US-MERCK-0602USA00362

PATIENT
  Age: 42 Year
  Sex: Female
  Weight: 107 kg

DRUGS (11)
  1. VIOXX [Suspect]
     Indication: OSTEOARTHRITIS
     Route: 048
     Dates: start: 20030101, end: 20040901
  2. DIOVAN [Concomitant]
     Route: 065
  3. NOVOLIN [Concomitant]
     Route: 065
  4. NOVOLIN [Concomitant]
     Route: 065
  5. LASIX [Concomitant]
     Route: 065
  6. ACTOS [Concomitant]
     Route: 065
  7. PAXIL [Concomitant]
     Route: 065
  8. VENTOLIN [Concomitant]
     Route: 055
  9. VENTOLIN [Concomitant]
     Route: 055
  10. DOXEPIN HYDROCHLORIDE [Concomitant]
     Route: 065
  11. DOXEPIN HYDROCHLORIDE [Concomitant]
     Route: 065

REACTIONS (20)
  - ANGINA PECTORIS [None]
  - ANHEDONIA [None]
  - ANXIETY [None]
  - ASTHENIA [None]
  - CARDIAC DISORDER [None]
  - CARDIAC FAILURE CONGESTIVE [None]
  - CAROTID ARTERY STENOSIS [None]
  - CEREBROVASCULAR ACCIDENT [None]
  - CHEST PAIN [None]
  - CORONARY ARTERY DISEASE [None]
  - DEPRESSION [None]
  - DIABETES MELLITUS [None]
  - DIASTOLIC DYSFUNCTION [None]
  - EMOTIONAL DISTRESS [None]
  - HYPERTENSION [None]
  - IODINE ALLERGY [None]
  - MENTAL DISORDER [None]
  - MYOCARDIAL INFARCTION [None]
  - PAIN [None]
  - TRANSIENT ISCHAEMIC ATTACK [None]
